FAERS Safety Report 8331148-7 (Version None)
Quarter: 2012Q2

REPORT INFORMATION
  Report Type: 
  Country: None (occurrence: None)
  Receive Date: 20120502
  Receipt Date: 20120412
  Transmission Date: 20120825
  Serious: No
  Sender: FDA-Public Use
  Company Number: US-AMGEN-USASP2012023314

PATIENT
  Age: 32 Year
  Sex: Female

DRUGS (1)
  1. ENBREL [Suspect]
     Indication: RHEUMATOID ARTHRITIS
     Dosage: 50 MG, QWK
     Dates: start: 20111223, end: 20120328

REACTIONS (9)
  - RASH ERYTHEMATOUS [None]
  - FATIGUE [None]
  - PYREXIA [None]
  - MENSTRUATION DELAYED [None]
  - NASOPHARYNGITIS [None]
  - ARTHROPOD BITE [None]
  - COUGH [None]
  - DYSPNOEA [None]
  - PALPITATIONS [None]
